FAERS Safety Report 20813591 (Version 2)
Quarter: 2022Q2

REPORT INFORMATION
  Report Type: Other
  Country: US (occurrence: None)
  Receive Date: 20220511
  Receipt Date: 20220523
  Transmission Date: 20220721
  Serious: Yes (Other)
  Sender: FDA-Public Use
  Company Number: US-ROCHE-2123551

PATIENT
  Sex: Female

DRUGS (2)
  1. CELLCEPT [Suspect]
     Active Substance: MYCOPHENOLATE MOFETIL
     Indication: Systemic lupus erythematosus
     Dosage: 6 TABLETS TWICE A DAY OF 500 MG (3 TABLET TWICE A DAY)
     Route: 048
  2. CELLCEPT [Suspect]
     Active Substance: MYCOPHENOLATE MOFETIL
     Dosage: 500 MG TABLET, 500 MG 3 TABLETS TWICE A DAY
     Route: 048

REACTIONS (3)
  - Neoplasm malignant [Unknown]
  - Choking [Unknown]
  - Off label use [Unknown]
